FAERS Safety Report 14937926 (Version 1)
Quarter: 2018Q2

REPORT INFORMATION
  Report Type: Spontaneous
  Country: US (occurrence: US)
  Receive Date: 20180525
  Receipt Date: 20180525
  Transmission Date: 20180711
  Serious: Yes (Other)
  Sender: FDA-Public Use
  Company Number: US-009507513-1805USA007767

PATIENT
  Age: 29 Year
  Sex: Female
  Weight: 52.15 kg

DRUGS (1)
  1. NEXPLANON [Suspect]
     Active Substance: ETONOGESTREL
     Indication: CONTRACEPTION
     Dosage: 1 LEFT ARM IMPLANT, EVERY 3 YEARS
     Route: 059
     Dates: start: 20151001

REACTIONS (4)
  - Device breakage [Not Recovered/Not Resolved]
  - Implant site pain [Unknown]
  - Tremor [Unknown]
  - Device dislocation [Not Recovered/Not Resolved]

NARRATIVE: CASE EVENT DATE: 2017
